FAERS Safety Report 7467947-3 (Version None)
Quarter: 2011Q2

REPORT INFORMATION
  Report Type: 
  Country: None (occurrence: None)
  Receive Date: 20110509
  Receipt Date: 20110210
  Transmission Date: 20111010
  Serious: No
  Sender: FDA-Public Use
  Company Number: US-ALEXION-A201100167

PATIENT
  Sex: Female

DRUGS (8)
  1. SOLIRIS [Suspect]
     Indication: PAROXYSMAL NOCTURNAL HAEMOGLOBINURIA
     Dosage: UNK
     Route: 042
  2. PREDNISONE [Concomitant]
     Dosage: 20 MG, 2 TABLETS AS DIRECTED, ORAL
     Route: 048
  3. SOLIRIS [Suspect]
     Dosage: 900 MG, Q10D
     Route: 042
  4. WARFARIN [Concomitant]
     Dosage: 4 MG, QD
     Route: 048
  5. PROMETHAZINE [Concomitant]
  6. PAROXETINE HCL [Concomitant]
     Indication: DEPRESSION
     Dosage: 20 MG, QD
     Route: 048
  7. FOLIC ACID [Concomitant]
     Dosage: 1, QD, ORAL
     Route: 048
  8. IRON [Concomitant]
     Dosage: 324 MG, QD
     Route: 048

REACTIONS (3)
  - STRESS [None]
  - FATIGUE [None]
  - HAEMOGLOBIN DECREASED [None]
